APPROVED DRUG PRODUCT: FLUVOXAMINE MALEATE
Active Ingredient: FLUVOXAMINE MALEATE
Strength: 25MG
Dosage Form/Route: TABLET;ORAL
Application: A075894 | Product #001
Applicant: HERITAGE PHARMA LABS INC
Approved: Apr 18, 2001 | RLD: No | RS: No | Type: DISCN